FAERS Safety Report 9290443 (Version 1)
Quarter: 2013Q2

REPORT INFORMATION
  Report Type: Spontaneous
  Country: US (occurrence: US)
  Receive Date: 20130514
  Receipt Date: 20130514
  Transmission Date: 20140414
  Serious: Yes (Other)
  Sender: FDA-Public Use
  Company Number: US-RB-053428-13

PATIENT
  Sex: Male

DRUGS (2)
  1. GENERIC BUPRENORPHINE/NALOXONE [Suspect]
     Indication: PRODUCT USED FOR UNKNOWN INDICATION
     Route: 065
  2. INTERFERON [Concomitant]
     Indication: HEPATITIS C
     Dosage: DOSING DETAILS UNKNOWN
     Route: 065

REACTIONS (3)
  - Hepatitis C [Not Recovered/Not Resolved]
  - Nausea [Unknown]
  - Product substitution issue [None]
